FAERS Safety Report 4887173-1 (Version None)
Quarter: 2005Q4

REPORT INFORMATION
  Report Type: 
  Country: None (occurrence: None)
  Receive Date: 20051223
  Receipt Date: 20050930
  Transmission Date: 20060501
  Serious: Yes (Hospitalization, Other)
  Sender: FDA-Public Use
  Company Number: US_001051713

PATIENT
  Age: 75 Year
  Sex: Female
  Weight: 90 kg

DRUGS (3)
  1. HUMALOG MIX 75/25 [Suspect]
     Indication: DIABETES MELLITUS
     Dosage: 50 U DAY
     Dates: start: 20010101
  2. HUMULIN 70/30 [Suspect]
     Indication: DIABETES MELLITUS
     Dates: start: 19900101, end: 20000101
  3. INSULIN [Suspect]
     Indication: DIABETES MELLITUS

REACTIONS (5)
  - BLINDNESS UNILATERAL [None]
  - EYE HAEMORRHAGE [None]
  - HYPERHIDROSIS [None]
  - HYPOGLYCAEMIA [None]
  - INJECTION SITE HAEMORRHAGE [None]
